FAERS Safety Report 12742089 (Version 1)
Quarter: 2016Q3

REPORT INFORMATION
  Report Type: Spontaneous
  Country: US (occurrence: US)
  Receive Date: 20160914
  Receipt Date: 20160914
  Transmission Date: 20161109
  Serious: No
  Sender: FDA-Public Use
  Company Number: US-BAYER-2016-175091

PATIENT
  Age: 83 Year
  Sex: Female
  Weight: 87.98 kg

DRUGS (1)
  1. MIRALAX [Suspect]
     Active Substance: POLYETHYLENE GLYCOL 3350
     Indication: FAECES SOFT
     Dosage: 1 DF, UNK
     Route: 048
     Dates: start: 20160905

REACTIONS (2)
  - Off label use [None]
  - Expired product administered [None]

NARRATIVE: CASE EVENT DATE: 20160905
